FAERS Safety Report 5655870-6 (Version None)
Quarter: 2008Q1

REPORT INFORMATION
  Report Type: 
  Country: None (occurrence: None)
  Receive Date: 20080307
  Receipt Date: 20080225
  Transmission Date: 20080703
  Serious: Yes (Other)
  Sender: FDA-Public Use
  Company Number: US-PFIZER INC-2008017947

PATIENT
  Sex: Female
  Weight: 78.9 kg

DRUGS (6)
  1. LYRICA [Suspect]
     Indication: FIBROMYALGIA
  2. LYRICA [Suspect]
     Indication: PAIN
  3. AMBIEN [Concomitant]
  4. CALCIUM [Concomitant]
  5. ALLEGRA [Concomitant]
  6. CELEBREX [Concomitant]

REACTIONS (3)
  - BREAST PAIN [None]
  - BREAST SWELLING [None]
  - SOMNOLENCE [None]
